FAERS Safety Report 9138073 (Version 3)
Quarter: 2013Q2

REPORT INFORMATION
  Report Type: Spontaneous
  Country: US (occurrence: US)
  Receive Date: 20130304
  Receipt Date: 20130606
  Transmission Date: 20140414
  Serious: Yes (Hospitalization, Disabling, Other)
  Sender: FDA-Public Use
  Company Number: US-INCYTE CORPORATION-2013IN000405

PATIENT
  Sex: Male

DRUGS (3)
  1. JAKAFI [Suspect]
     Indication: MYELOFIBROSIS
     Dosage: 15 MG, QD AM
     Route: 048
     Dates: start: 20120601
  2. JAKAFI [Suspect]
     Dosage: 20 MG, QD AT BEDTIME
     Dates: start: 20120601
  3. CIPRO [Suspect]

REACTIONS (4)
  - Adverse drug reaction [Unknown]
  - Myocardial infarction [Unknown]
  - Finger amputation [Unknown]
  - Kidney infection [Unknown]
